FAERS Safety Report 5307727-8 (Version None)
Quarter: 2007Q2

REPORT INFORMATION
  Report Type: 
  Country: None (occurrence: None)
  Receive Date: 20070418
  Receipt Date: 20070404
  Transmission Date: 20071010
  Serious: Yes (Hospitalization)
  Sender: FDA-Public Use
  Company Number: 2007US-06805

PATIENT
  Age: 13 Year
  Sex: 0

DRUGS (1)
  1. ISOTRETINOIN [Suspect]
     Dates: start: 20070327, end: 20070331

REACTIONS (1)
  - APPENDICITIS [None]
